FAERS Safety Report 4457986-9 (Version None)
Quarter: 2004Q3

REPORT INFORMATION
  Report Type: 
  Country: None (occurrence: None)
  Receive Date: 20040917
  Receipt Date: 20040618
  Transmission Date: 20050211
  Serious: Yes (Hospitalization)
  Sender: FDA-Public Use
  Company Number: US-JNJFOC-20040405944

PATIENT
  Age: 14 Year
  Sex: Female

DRUGS (2)
  1. TOPAMAX [Suspect]
     Indication: MIGRAINE PROPHYLAXIS
     Dosage: 25 MG, 2 IN 1 DAY; 20 MG, IN  1 DAY
  2. LEXAPRO [Concomitant]

REACTIONS (1)
  - DEPRESSION [None]
